FAERS Safety Report 7415376-0 (Version None)
Quarter: 2011Q2

REPORT INFORMATION
  Report Type: 
  Country: None (occurrence: None)
  Receive Date: 20110414
  Receipt Date: 20110406
  Transmission Date: 20111010
  Serious: Yes (Disabling)
  Sender: FDA-Public Use
  Company Number: B0706776A

PATIENT
  Sex: Male
  Weight: 12.9 kg

DRUGS (4)
  1. ALKERAN [Suspect]
     Indication: STEM CELL TRANSPLANT
     Dosage: 100MGM2 PER DAY
     Route: 042
     Dates: start: 20070113, end: 20070114
  2. VEPESID [Suspect]
     Indication: STEM CELL TRANSPLANT
     Dosage: 200MGM2 PER DAY
     Route: 042
     Dates: start: 20070111, end: 20070114
  3. NEUTROGIN [Concomitant]
     Route: 042
     Dates: start: 20070124, end: 20070126
  4. CARBOPLATIN [Suspect]
     Indication: STEM CELL TRANSPLANT
     Dosage: 400MGM2 PER DAY
     Route: 042
     Dates: start: 20070111, end: 20070114

REACTIONS (3)
  - GASTROINTESTINAL DISORDER [None]
  - CLOSTRIDIUM COLITIS [None]
  - STOMATITIS [None]
